FAERS Safety Report 5422255-7 (Version None)
Quarter: 2007Q3

REPORT INFORMATION
  Report Type: 
  Country: None (occurrence: None)
  Receive Date: 20070822
  Receipt Date: 20070813
  Transmission Date: 20080115
  Serious: Yes (Death)
  Sender: FDA-Public Use
  Company Number: US-AVENTIS-200715784US

PATIENT
  Sex: Female

DRUGS (6)
  1. LOVENOX [Suspect]
     Dosage: DOSE: UNK
     Dates: start: 20070725, end: 20070805
  2. ASPIRIN [Concomitant]
     Dosage: DOSE: EVERY OTHER DAY
  3. AMIODARONE HCL [Concomitant]
     Dosage: DOSE: UNK
  4. PROTONIX [Concomitant]
     Dosage: DOSE: UNK
  5. ARANESP [Concomitant]
     Dosage: DOSE: UNK
  6. PLAVIX [Concomitant]
     Indication: ATRIAL FIBRILLATION
     Dates: start: 20060901, end: 20070723

REACTIONS (2)
  - ABDOMINAL PAIN LOWER [None]
  - MYOCARDIAL INFARCTION [None]
